FAERS Safety Report 6846829-1 (Version None)
Quarter: 2010Q3

REPORT INFORMATION
  Report Type: 
  Country: None (occurrence: None)
  Receive Date: 20100715
  Receipt Date: 20071115
  Transmission Date: 20110219
  Serious: Yes (Disabling)
  Sender: FDA-Public Use
  Company Number: US-PFIZER INC-2007080484

PATIENT
  Sex: Male
  Weight: 129.1 kg

DRUGS (13)
  1. CHANTIX [Suspect]
     Indication: SMOKING CESSATION THERAPY
     Dates: start: 20070720, end: 20070723
  2. CHANTIX [Suspect]
     Dosage: BID
     Dates: start: 20070724, end: 20070727
  3. CHANTIX [Suspect]
     Dosage: BID
     Dates: start: 20070728
  4. IBUPROFEN [Concomitant]
  5. SKELAXIN [Concomitant]
  6. LYRICA [Concomitant]
  7. HYDROCHLOROTHIAZIDE [Concomitant]
  8. SERTRALINE HYDROCHLORIDE [Concomitant]
  9. TRAMADOL [Concomitant]
  10. ISONIAZID [Concomitant]
  11. ZOLPIDEM TARTRATE [Concomitant]
  12. TRAVATAN [Concomitant]
     Dosage: 0.0004%
  13. TIMOLOL MALEATE [Concomitant]
     Dosage: 0.5 %

REACTIONS (8)
  - ABDOMINAL DISTENSION [None]
  - ABDOMINAL PAIN [None]
  - ASTHENIA [None]
  - BALANCE DISORDER [None]
  - CONSTIPATION [None]
  - DIARRHOEA [None]
  - FALL [None]
  - VOMITING [None]
